FAERS Safety Report 24832961 (Version 2)
Quarter: 2025Q1

REPORT INFORMATION
  Report Type: Spontaneous
  Country: JP (occurrence: JP)
  Receive Date: 20250111
  Receipt Date: 20250322
  Transmission Date: 20250408
  Serious: Yes (Death, Other)
  Sender: UNITED THERAPEUTICS
  Company Number: JP-UNITED THERAPEUTICS-UNT-2025-000774

PATIENT
  Age: 86 Year
  Sex: Female

DRUGS (1)
  1. TYVASO [Suspect]
     Active Substance: TREPROSTINIL
     Indication: Pulmonary arterial hypertension

REACTIONS (1)
  - Pulmonary hypertension [Fatal]
